FAERS Safety Report 7480306-2 (Version None)
Quarter: 2011Q2

REPORT INFORMATION
  Report Type: 
  Country: None (occurrence: None)
  Receive Date: 20110504
  Receipt Date: 20110420
  Transmission Date: 20111010
  Serious: Yes (Hospitalization)
  Sender: FDA-Public Use
  Company Number: 031486

PATIENT
  Sex: Male

DRUGS (1)
  1. CIMZIA [Suspect]
     Indication: CROHN'S DISEASE
     Dosage: (FORM: LYO;LAST DOSE ON 01-APR-2011 SUBCUTANEOUS
     Route: 058
     Dates: start: 20090209

REACTIONS (2)
  - UNEVALUABLE EVENT [None]
  - HOSPITALISATION [None]
